FAERS Safety Report 24251587 (Version 5)
Quarter: 2025Q1

REPORT INFORMATION
  Report Type: Report from Study
  Country: US (occurrence: US)
  Receive Date: 20240827
  Receipt Date: 20250312
  Transmission Date: 20250408
  Serious: Yes (Other)
  Sender: ABBVIE
  Company Number: US-ABBVIE-5891213

PATIENT
  Sex: Female

DRUGS (13)
  1. VENCLEXTA [Suspect]
     Active Substance: VENETOCLAX
     Indication: Chronic lymphocytic leukaemia
     Route: 048
  2. ALLEGRA [Concomitant]
     Active Substance: FEXOFENADINE HYDROCHLORIDE
     Indication: Product used for unknown indication
  3. COENZYME Q10 [Concomitant]
     Active Substance: DIETARY SUPPLEMENT\UBIDECARENONE
     Indication: Product used for unknown indication
  4. PRASTERONE [Concomitant]
     Active Substance: PRASTERONE
     Indication: Product used for unknown indication
  5. L Lysine [Concomitant]
     Indication: Product used for unknown indication
  6. ONDANSETRON [Concomitant]
     Active Substance: ONDANSETRON
     Indication: Product used for unknown indication
  7. OXYBUTYNIN [Concomitant]
     Active Substance: OXYBUTYNIN
     Indication: Product used for unknown indication
  8. POTASSIUM CITRATE [Concomitant]
     Active Substance: POTASSIUM CITRATE
     Indication: Product used for unknown indication
  9. MAGNESIUM [Concomitant]
     Active Substance: MAGNESIUM
     Indication: Product used for unknown indication
  10. VITAMIN B COMPLEX [Concomitant]
     Active Substance: CYANOCOBALAMIN\DEXPANTHENOL\NIACINAMIDE\PYRIDOXINE HYDROCHLORIDE\RIBOFLAVIN 5^-PHOSPHATE SODIUM\THIA
     Indication: Product used for unknown indication
  11. VITAMIN E [Concomitant]
     Active Substance: .ALPHA.-TOCOPHEROL
     Indication: Product used for unknown indication
  12. VITAMIN C [Concomitant]
     Active Substance: ASCORBIC ACID
     Indication: Product used for unknown indication
  13. ZINC [Concomitant]
     Active Substance: ZINC
     Indication: Product used for unknown indication

REACTIONS (9)
  - Pleural effusion [Recovering/Resolving]
  - Pain [Not Recovered/Not Resolved]
  - Autophony [Not Recovered/Not Resolved]
  - Ear pain [Not Recovered/Not Resolved]
  - Hypoacusis [Not Recovered/Not Resolved]
  - Speech disorder [Not Recovered/Not Resolved]
  - Tremor [Not Recovered/Not Resolved]
  - Alopecia [Not Recovered/Not Resolved]
  - Mass [Not Recovered/Not Resolved]
